FAERS Safety Report 18114887 (Version 1)
Quarter: 2020Q3

REPORT INFORMATION
  Report Type: Report from Study
  Country: CA (occurrence: CA)
  Receive Date: 20200805
  Receipt Date: 20200805
  Transmission Date: 20201103
  Serious: Yes (Other)
  Sender: FDA-Public Use
  Company Number: CA-JNJFOC-20200322470

PATIENT
  Age: 15 Year
  Sex: Male
  Weight: 64.2 kg

DRUGS (1)
  1. REMICADE [Suspect]
     Active Substance: INFLIXIMAB
     Indication: CROHN^S DISEASE
     Dosage: THE PATIENT RECEIVED SECOND INFUSION ON 13?MAR?2020.
     Route: 042
     Dates: start: 202002

REACTIONS (3)
  - Off label use [Unknown]
  - Anal abscess [Unknown]
  - Inappropriate schedule of product administration [Unknown]
